FAERS Safety Report 5265958-X (Version None)
Quarter: 2007Q1

REPORT INFORMATION
  Report Type: 
  Country: None (occurrence: None)
  Receive Date: 20070315
  Receipt Date: 20070305
  Transmission Date: 20070707
  Serious: Yes (Other)
  Sender: FDA-Public Use
  Company Number: PHBS2007JP03519

PATIENT
  Age: 63 Year
  Sex: Male

DRUGS (2)
  1. VOLTAREN [Suspect]
     Indication: BACK PAIN
     Route: 048
  2. NIFLAN [Suspect]
     Indication: BACK PAIN

REACTIONS (3)
  - DRUG INTERACTION [None]
  - GLOMERULONEPHRITIS [None]
  - HAEMOLYTIC ANAEMIA [None]
